FAERS Safety Report 8482834-X (Version None)
Quarter: 2012Q2

REPORT INFORMATION
  Report Type: 
  Country: None (occurrence: None)
  Receive Date: 20120626
  Receipt Date: 20120618
  Transmission Date: 20120825
  Serious: Yes (Hospitalization)
  Sender: FDA-Public Use
  Company Number: 2012SP026327

PATIENT
  Age: 40 Year
  Sex: Male

DRUGS (3)
  1. DELORAZEPAM [Concomitant]
  2. DEPAKENE [Concomitant]
  3. SYCREST (ASENAPINE /05706901/) [Suspect]
     Indication: BIPOLAR DISORDER
     Dosage: 10 MG;ONCE;SL
     Route: 060
     Dates: start: 20120514, end: 20120514

REACTIONS (6)
  - HYPOTENSION [None]
  - BRADYCARDIA [None]
  - CARDIOPULMONARY FAILURE [None]
  - SYNCOPE [None]
  - DYSPNOEA [None]
  - SEDATION [None]
